FAERS Safety Report 17461368 (Version 4)
Quarter: 2020Q2

REPORT INFORMATION
  Report Type: Report from Study
  Country: FR (occurrence: FR)
  Receive Date: 20200226
  Receipt Date: 20200422
  Transmission Date: 20200713
  Serious: No
  Sender: FDA-Public Use
  Company Number: FR-ROCHE-2553629

PATIENT
  Age: 48 Year
  Sex: Male

DRUGS (5)
  1. VEMURAFENIB. [Suspect]
     Active Substance: VEMURAFENIB
     Indication: METASTATIC MALIGNANT MELANOMA
     Dosage: ON 17/FEB/2020, RECEIVED MOST RECENT DOSE OF VEMURAFENIB (720 MG) PRIOR TO SAE ONSET.
     Route: 048
     Dates: start: 20191223
  2. COBIMETINIB. [Suspect]
     Active Substance: COBIMETINIB
     Indication: METASTATIC MALIGNANT MELANOMA
     Dosage: ON 17/FEB/2020, RECEIVED MOST RECENT DOSE OF COBIMETINIB (60 MG) PRIOR TO SAE ONSET.
     Route: 048
     Dates: start: 20191224
  3. ATEZOLIZUMAB. [Suspect]
     Active Substance: ATEZOLIZUMAB
     Indication: METASTATIC MALIGNANT MELANOMA
     Dosage: ON 22/JAN/2020, AT 16 31HE RECEIVED MOST RECENT DOSE OF ATEZOLIZUMAB (840 MG) ADMINISTERED PRIOR TO
     Route: 042
     Dates: start: 20200122
  4. LOXEN [NICARDIPINE HYDROCHLORIDE] [Concomitant]
     Active Substance: NICARDIPINE HYDROCHLORIDE
     Indication: HYPERTENSION
     Route: 048
     Dates: start: 20200113, end: 20200113
  5. CANDESARTAN. [Concomitant]
     Active Substance: CANDESARTAN
     Indication: HYPERTENSION
     Route: 048
     Dates: start: 20200118

REACTIONS (1)
  - Tubulointerstitial nephritis [Not Recovered/Not Resolved]

NARRATIVE: CASE EVENT DATE: 20200203
